FAERS Safety Report 8796340 (Version 2)
Quarter: 2012Q4

REPORT INFORMATION
  Report Type: 
  Country: GB (occurrence: GB)
  Receive Date: 20120919
  Receipt Date: 20121001
  Transmission Date: 20130627
  Serious: Yes (Death)
  Sender: FDA-Public Use
  Company Number: GB-B.I. PHARMACEUTICALS,INC./RIDGEFIELD-2012-UK-01234UK

PATIENT
  Sex: Male

DRUGS (4)
  1. DABIGATRAN [Suspect]
     Indication: EMBOLISM VENOUS
  2. ASPIRIN [Concomitant]
  3. NON-STEROIDS [Concomitant]
  4. ANTICOAGULANT [Concomitant]

REACTIONS (1)
  - Haemorrhage [Fatal]
